FAERS Safety Report 8989954 (Version 2)
Quarter: 2013Q1

REPORT INFORMATION
  Report Type: Spontaneous
  Country: CA (occurrence: CA)
  Receive Date: 20121228
  Receipt Date: 20130325
  Transmission Date: 20140127
  Serious: Yes (Other)
  Sender: FDA-Public Use
  Company Number: CA-ELI_LILLY_AND_COMPANY-CA201212006634

PATIENT
  Age: 77 Year
  Sex: Female

DRUGS (11)
  1. FORTEO [Suspect]
     Indication: OSTEOPOROSIS
     Dosage: 20 UG, QD
     Route: 058
     Dates: start: 20110728
  2. NEXIUM [Concomitant]
     Dosage: UNK, UNKNOWN
     Route: 065
  3. LYRICA [Concomitant]
     Dosage: UNK, UNKNOWN
     Route: 065
  4. TRIDURAL [Concomitant]
     Dosage: UNK, UNKNOWN
     Route: 065
  5. PREDNISONE [Concomitant]
     Dosage: UNK, UNKNOWN
     Route: 065
  6. BABY ASPIRIN [Concomitant]
     Dosage: UNK, UNKNOWN
     Route: 065
  7. XALATAN [Concomitant]
     Dosage: UNK, UNKNOWN
     Route: 005
  8. ALPHAGAN [Concomitant]
     Dosage: UNK, UNKNOWN
     Route: 065
  9. CALCIUM [Concomitant]
     Dosage: UNK, UNKNOWN
     Route: 065
  10. D-TABS [Concomitant]
     Dosage: UNK, UNKNOWN
     Route: 065
  11. VOLTAREN                                /SCH/ [Concomitant]
     Dosage: UNK, UNKNOWN
     Route: 005

REACTIONS (2)
  - Pelvic fracture [Recovered/Resolved]
  - Fall [Recovered/Resolved]
